FAERS Safety Report 8276028 (Version 4)
Quarter: 2014Q1

REPORT INFORMATION
  Report Type: Spontaneous
  Country: US (occurrence: US)
  Receive Date: 20111206
  Receipt Date: 20140314
  Transmission Date: 20141002
  Serious: Yes (Other)
  Sender: FDA-Public Use
  Company Number: US-BRISTOL-MYERS SQUIBB COMPANY-16256729

PATIENT
  Age: 57 Year
  Sex: Female
  Weight: 98.41 kg

DRUGS (10)
  1. ABILIFY [Suspect]
     Indication: BIPOLAR DISORDER
     Dosage: STARTED AS 5MG, THEN 7.5MG?DOSE INCR TO 10MG (TAKEN FOR 3 MTHS)THEN 7.5MG AGAIN?DK62680A,OCT2013
     Route: 048
  2. CYMBALTA [Concomitant]
  3. LAMICTAL [Concomitant]
  4. ADVAIR [Concomitant]
     Dosage: 1 DF: 250/50.
  5. TRANXENE [Concomitant]
     Indication: ANXIETY
  6. ZETIA [Concomitant]
  7. LISINOPRIL [Concomitant]
  8. FLEXERIL [Concomitant]
  9. FENOFIBRATE [Concomitant]
     Dosage: 1 CAPS.
  10. ZANAFLEX [Concomitant]

REACTIONS (3)
  - Herpes virus infection [Unknown]
  - Wrong technique in drug usage process [Unknown]
  - Feeling abnormal [Unknown]
